FAERS Safety Report 12755489 (Version 2)
Quarter: 2016Q4

REPORT INFORMATION
  Report Type: Spontaneous
  Country: US (occurrence: US)
  Receive Date: 20160916
  Receipt Date: 20161107
  Transmission Date: 20170207
  Serious: No
  Sender: FDA-Public Use
  Company Number: US-009507513-1609USA007465

PATIENT
  Age: 19 Year
  Sex: Female
  Weight: 84.81 kg

DRUGS (1)
  1. NEXPLANON [Suspect]
     Active Substance: ETONOGESTREL
     Indication: CONTRACEPTION
     Dosage: LEFT ARM IMPLANT / EVERY 3 YEARS
     Route: 059
     Dates: start: 20140930

REACTIONS (4)
  - Headache [Unknown]
  - Menometrorrhagia [Unknown]
  - Menstruation irregular [Unknown]
  - Metrorrhagia [Unknown]

NARRATIVE: CASE EVENT DATE: 201509
